FAERS Safety Report 5423526-0 (Version None)
Quarter: 2007Q3

REPORT INFORMATION
  Report Type: 
  Country: None (occurrence: None)
  Receive Date: 20070823
  Receipt Date: 20070820
  Transmission Date: 20080115
  Serious: Yes (Hospitalization)
  Sender: FDA-Public Use
  Company Number: FR-BRISTOL-MYERS SQUIBB COMPANY-13883814

PATIENT
  Age: 10 Year
  Sex: Female
  Weight: 27 kg

DRUGS (2)
  1. AMIKLIN INJ [Suspect]
     Route: 042
     Dates: start: 20070602, end: 20070606
  2. TARGOCID [Suspect]
     Route: 042
     Dates: start: 20070602, end: 20070606

REACTIONS (4)
  - ERYTHEMA [None]
  - FIXED ERUPTION [None]
  - PIGMENTATION DISORDER [None]
  - PRURITUS [None]
